FAERS Safety Report 5963756-2 (Version None)
Quarter: 2008Q4

REPORT INFORMATION
  Report Type: 
  Country: None (occurrence: None)
  Receive Date: 20081121
  Receipt Date: 20081121
  Transmission Date: 20090506
  Serious: Yes (Other)
  Sender: FDA-Public Use
  Company Number: None

PATIENT
  Age: 51 Year
  Sex: Female
  Weight: 61.2356 kg

DRUGS (2)
  1. MIRENA [Suspect]
     Indication: CONTRACEPTION
     Dates: start: 20080921, end: 20081103
  2. MIRENA [Suspect]
     Indication: ENDOMETRIOSIS
     Dates: start: 20080921, end: 20081103

REACTIONS (1)
  - ALOPECIA [None]
